FAERS Safety Report 15618524 (Version 2)
Quarter: 2018Q4

REPORT INFORMATION
  Report Type: Spontaneous
  Country: BR (occurrence: BR)
  Receive Date: 20181114
  Receipt Date: 20181205
  Transmission Date: 20190205
  Serious: Yes (Other)
  Sender: FDA-Public Use
  Company Number: BR-PFIZER INC-2018460811

PATIENT
  Age: 69 Year
  Sex: Female

DRUGS (2)
  1. LORAX [Suspect]
     Active Substance: LORAZEPAM
     Dosage: 4 MG (TWO TABLETS), UNK
  2. LORAX [Suspect]
     Active Substance: LORAZEPAM
     Indication: SLEEP DISORDER
     Dosage: 2 MG, ONE TABLET AT NIGHT

REACTIONS (5)
  - Labyrinthitis [Recovered/Resolved]
  - Loss of consciousness [Recovered/Resolved]
  - Fall [Recovered/Resolved]
  - Head injury [Recovered/Resolved]
  - Product use in unapproved indication [Unknown]

NARRATIVE: CASE EVENT DATE: 2012
